FAERS Safety Report 7432783-0 (Version None)
Quarter: 2011Q2

REPORT INFORMATION
  Report Type: 
  Country: None (occurrence: None)
  Receive Date: 20110422
  Receipt Date: 20110415
  Transmission Date: 20111010
  Serious: Yes (Other)
  Sender: FDA-Public Use
  Company Number: B0714107A

PATIENT
  Age: 40 Year
  Sex: Female

DRUGS (4)
  1. NORVIR [Concomitant]
     Indication: HIV INFECTION
     Route: 065
     Dates: start: 20070201, end: 20100920
  2. KIVEXA [Suspect]
     Indication: HIV INFECTION
     Route: 048
     Dates: start: 20070201, end: 20100920
  3. REYATAZ [Suspect]
     Indication: HIV INFECTION
     Route: 048
     Dates: start: 20070201, end: 20100920
  4. SEROPLEX [Concomitant]
     Route: 048
     Dates: start: 20100801

REACTIONS (3)
  - HEPATOCELLULAR INJURY [None]
  - TRANSAMINASES INCREASED [None]
  - FATIGUE [None]
